FAERS Safety Report 9974943 (Version 1)
Quarter: 2014Q1

REPORT INFORMATION
  Report Type: Report from Study
  Country: US (occurrence: US)
  Receive Date: 20140306
  Receipt Date: 20140306
  Transmission Date: 20141002
  Serious: No
  Sender: FDA-Public Use
  Company Number: US-ABBVIE-13P-163-1157840-00

PATIENT
  Age: 80 Year
  Sex: Female

DRUGS (22)
  1. HUMIRA [Suspect]
     Indication: RHEUMATOID ARTHRITIS
     Dates: start: 201303
  2. FOSAMAX [Concomitant]
     Indication: OSTEOPOROSIS
  3. TRAMADOL [Concomitant]
     Indication: PAIN
  4. ACETAMINOPHEN [Concomitant]
     Indication: PAIN
  5. ASPIRIN [Concomitant]
     Indication: ANTICOAGULANT THERAPY
     Dosage: 81 MG DAILY
  6. CALCIUM [Concomitant]
     Indication: OSTEOPOROSIS
  7. STEROID ANTIBACTERIALS [Concomitant]
     Indication: OSTEOARTHRITIS
     Dosage: IN SPINE BETWEEN 4TH AND 5TH VERTEBRAE
  8. SYNVISC [Concomitant]
     Indication: OSTEOARTHRITIS
     Dosage: IN KNEE
  9. SYNVISC [Concomitant]
     Indication: RHEUMATOID ARTHRITIS
  10. GABAPENTIN [Concomitant]
     Indication: PAIN
     Route: 061
  11. AMITRIPTYLINE [Concomitant]
     Indication: PAIN
     Route: 061
  12. LIDOCAINE [Concomitant]
     Indication: PAIN
     Route: 061
  13. HYDROCHLOROTHIAZIDE [Concomitant]
     Indication: HYPERTENSION
  14. PLAQUENIL [Concomitant]
     Indication: ARTHRITIS
  15. LIDODERM [Concomitant]
     Indication: PAIN
  16. LOSARTAN [Concomitant]
     Indication: HYPERTENSION
  17. METHOTREXATE [Concomitant]
     Indication: ARTHRITIS
  18. REGLAN [Concomitant]
     Indication: NAUSEA
  19. METOPROLOL [Concomitant]
     Indication: HYPERTENSION
  20. MULTIVITAMIN [Concomitant]
     Indication: PRODUCT USED FOR UNKNOWN INDICATION
  21. OXYBUTININ [Concomitant]
     Indication: INCONTINENCE
  22. VITAMIN A, C, E COMBINATION [Concomitant]
     Indication: PROPHYLAXIS

REACTIONS (10)
  - Device malfunction [Recovered/Resolved]
  - Drug dose omission [Recovered/Resolved]
  - Device malfunction [Recovered/Resolved]
  - Drug dose omission [Recovered/Resolved]
  - Device malfunction [Recovered/Resolved]
  - Drug dose omission [Recovered/Resolved]
  - Device malfunction [Recovered/Resolved]
  - Drug dose omission [Recovered/Resolved]
  - Musculoskeletal stiffness [Recovered/Resolved]
  - Pain [Recovered/Resolved]
